FAERS Safety Report 8507472 (Version 4)
Quarter: 2015Q4

REPORT INFORMATION
  Report Type: Spontaneous
  Country: US (occurrence: US)
  Receive Date: 20120412
  Receipt Date: 20151125
  Transmission Date: 20160305
  Serious: Yes (Other)
  Sender: FDA-Public Use
  Company Number: US-ASTRAZENECA-2012SE14559

PATIENT
  Age: 691 Month
  Sex: Female
  Weight: 95.3 kg

DRUGS (7)
  1. NEXIUM [Suspect]
     Active Substance: ESOMEPRAZOLE MAGNESIUM
     Indication: GASTROOESOPHAGEAL REFLUX DISEASE
     Route: 048
     Dates: start: 2006, end: 201511
  2. B COMPLEX WITH C [Concomitant]
     Indication: VITAMIN SUPPLEMENTATION
     Dosage: DAILY
     Route: 048
     Dates: start: 2000
  3. LISINOPRIL. [Suspect]
     Active Substance: LISINOPRIL
     Indication: MITRAL VALVE DISEASE
     Route: 048
     Dates: start: 2009
  4. NEXIUM [Suspect]
     Active Substance: ESOMEPRAZOLE MAGNESIUM
     Indication: GASTROOESOPHAGEAL REFLUX DISEASE
     Route: 048
  5. TUMS [Concomitant]
     Active Substance: CALCIUM CARBONATE
  6. FISH OIL [Concomitant]
     Active Substance: FISH OIL
     Indication: BLOOD CHOLESTEROL DECREASED
     Route: 048
     Dates: start: 2005
  7. NEXIUM [Suspect]
     Active Substance: ESOMEPRAZOLE MAGNESIUM
     Indication: GASTROOESOPHAGEAL REFLUX DISEASE
     Route: 048
     Dates: start: 201511

REACTIONS (12)
  - Stress [Unknown]
  - Gastrooesophageal reflux disease [Unknown]
  - Chest pain [Unknown]
  - Activities of daily living impaired [Unknown]
  - Adverse event [Unknown]
  - Insomnia [Unknown]
  - Dyspepsia [Unknown]
  - Drug dose omission [Unknown]
  - Pain [Unknown]
  - Mitral valve incompetence [Unknown]
  - Drug ineffective [Unknown]
  - Off label use [Unknown]

NARRATIVE: CASE EVENT DATE: 201511
